FAERS Safety Report 12740936 (Version 1)
Quarter: 2016Q3

REPORT INFORMATION
  Report Type: Spontaneous
  Country: JP (occurrence: JP)
  Receive Date: 20160914
  Receipt Date: 20160914
  Transmission Date: 20161109
  Serious: Yes (Life-Threatening)
  Sender: FDA-Public Use
  Company Number: JP-ROCHE-1829316

PATIENT
  Age: 59 Year
  Sex: Male
  Weight: 52 kg

DRUGS (6)
  1. AVASTIN [Suspect]
     Active Substance: BEVACIZUMAB
     Indication: SMALL INTESTINE CARCINOMA
     Dosage: TREATMENT LINE: 1ST?COMPLETED TREATMENT CYCLE NUMBER: 23
     Route: 041
     Dates: start: 20140930, end: 20160107
  2. ELPLAT [Concomitant]
     Active Substance: OXALIPLATIN
     Indication: SMALL INTESTINE CARCINOMA
     Route: 041
     Dates: start: 20140930, end: 20141022
  3. XELODA [Suspect]
     Active Substance: CAPECITABINE
     Indication: SMALL INTESTINE CARCINOMA
     Dosage: COMPLETED TREATMENT CYCLE NUMBER: 23
     Route: 048
     Dates: start: 20140930, end: 20160107
  4. ELPLAT [Concomitant]
     Active Substance: OXALIPLATIN
     Indication: SMALL INTESTINE CARCINOMA
     Route: 041
     Dates: start: 20141022, end: 20150501
  5. FERROMIA [Concomitant]
     Active Substance: FERROUS CITRATE
     Indication: ANAEMIA
     Route: 048
     Dates: end: 20160120
  6. MOSAPRIDE CITRATE [Concomitant]
     Active Substance: MOSAPRIDE CITRATE
     Indication: ABDOMINAL DISCOMFORT
     Route: 048
     Dates: end: 20160120

REACTIONS (4)
  - Zinc deficiency [Unknown]
  - Off label use [Unknown]
  - Gastrointestinal perforation [Recovered/Resolved]
  - Hypertension [Unknown]

NARRATIVE: CASE EVENT DATE: 20160120
